FAERS Safety Report 5493111-3 (Version None)
Quarter: 2007Q4

REPORT INFORMATION
  Report Type: 
  Country: None (occurrence: None)
  Receive Date: 20071018
  Receipt Date: 20071002
  Transmission Date: 20080405
  Serious: Yes (Life-Threatening, Hospitalization)
  Sender: FDA-Public Use
  Company Number: 161566ISR

PATIENT
  Age: 47 Year
  Sex: Male

DRUGS (5)
  1. CISPLATIN [Suspect]
     Indication: SMALL CELL LUNG CANCER STAGE UNSPECIFIED
     Dosage: 150 MG (80 MG/M2, 1 IN 3 WK) INTRAVENOUS (NOT OTHERWISE SPECIFIED)
     Route: 042
     Dates: start: 20070612, end: 20070705
  2. ETOPOSIDE [Suspect]
     Indication: SMALL CELL LUNG CANCER STAGE UNSPECIFIED
     Dosage: 200 MG (100 MG/M2, DAY 1, 2, 3, ) INTRAVENOUS (NOT OTHERWISE SPECIFIED)
     Route: 042
     Dates: start: 20070612, end: 20070705
  3. ESOMEPRAZOLE MAGNESIUM [Concomitant]
  4. DEXAMETHASONE 0.5MG TAB [Concomitant]
  5. CARBAMAZEPINE [Concomitant]

REACTIONS (8)
  - DISEASE PROGRESSION [None]
  - EPILEPSY [None]
  - HAEMOGLOBIN DECREASED [None]
  - PNEUMONIA [None]
  - RESPIRATORY DISTRESS [None]
  - SEPTIC SHOCK [None]
  - TACHYCARDIA [None]
  - UNEVALUABLE EVENT [None]
